FAERS Safety Report 13414403 (Version 1)
Quarter: 2017Q1

REPORT INFORMATION
  Report Type: Spontaneous
  Country: US (occurrence: US)
  Receive Date: 20170314
  Receipt Date: 20170314
  Transmission Date: 20170429
  Serious: No
  Sender: FDA-Public Use
  Company Number: None

PATIENT
  Age: 6 Month
  Sex: Male
  Weight: 5.4 kg

DRUGS (2)
  1. NUBY TEETHING GEL [Suspect]
     Active Substance: EUGENOL
     Indication: TEETHING
     Dosage: 1 DROP AS NEEDED ORAL
     Route: 048
     Dates: start: 20170309, end: 20170314
  2. INFANTS TYLENOL [Concomitant]
     Active Substance: ACETAMINOPHEN

REACTIONS (6)
  - Gingival disorder [None]
  - Scratch [None]
  - Product odour abnormal [None]
  - Agitation [None]
  - Tongue discomfort [None]
  - Product taste abnormal [None]

NARRATIVE: CASE EVENT DATE: 20170314
